FAERS Safety Report 5041399-5 (Version None)
Quarter: 2006Q2

REPORT INFORMATION
  Report Type: 
  Country: None (occurrence: None)
  Receive Date: 20060628
  Receipt Date: 20060616
  Transmission Date: 20061013
  Serious: Yes (Death, Hospitalization)
  Sender: FDA-Public Use
  Company Number: HQWYE322321JUN06

PATIENT
  Sex: Male

DRUGS (1)
  1. CORDARONE [Suspect]
     Dosage: INTRAVENOUS
     Route: 042

REACTIONS (3)
  - ATRIAL FIBRILLATION [None]
  - PULMONARY TOXICITY [None]
  - RESPIRATORY FAILURE [None]
